FAERS Safety Report 6803050-0 (Version None)
Quarter: 2010Q2

REPORT INFORMATION
  Report Type: 
  Country: None (occurrence: None)
  Receive Date: 20100628
  Receipt Date: 20100621
  Transmission Date: 20101027
  Serious: Yes (Hospitalization)
  Sender: FDA-Public Use
  Company Number: JP-ASTRAZENECA-2010SE16941

PATIENT
  Age: 27165 Day
  Sex: Male
  Weight: 45 kg

DRUGS (7)
  1. IRESSA [Suspect]
     Indication: LUNG ADENOCARCINOMA
     Route: 048
     Dates: start: 20100201, end: 20100331
  2. TEGRETOL [Concomitant]
     Indication: EPILEPSY
     Route: 048
     Dates: end: 20100130
  3. TEGRETOL [Concomitant]
     Route: 048
     Dates: start: 20100130, end: 20100201
  4. GABAPEN [Concomitant]
     Indication: EPILEPSY
     Route: 048
     Dates: start: 20100130
  5. EXCEGRAN [Concomitant]
     Indication: EPILEPSY
     Route: 048
  6. SELBEX [Concomitant]
     Indication: GASTRITIS
     Route: 048
  7. MEVALOTIN [Concomitant]
     Indication: HYPERLIPIDAEMIA
     Route: 048

REACTIONS (1)
  - COLITIS ULCERATIVE [None]
